FAERS Safety Report 13513983 (Version 2)
Quarter: 2017Q2

REPORT INFORMATION
  Report Type: Report from Study
  Country: GB (occurrence: GB)
  Receive Date: 20170504
  Receipt Date: 20170518
  Transmission Date: 20170830
  Serious: Yes (Death, Hospitalization)
  Sender: FDA-Public Use
  Company Number: GB-VERTEX PHARMACEUTICALS-2017-002321

PATIENT
  Age: 23 Year
  Sex: Female

DRUGS (14)
  1. AZTREONAM. [Concomitant]
     Active Substance: AZTREONAM
     Dosage: ALTERNATING MONTHLY WITH COLOMYCIN
     Route: 055
  2. VITAMIN BPC [Concomitant]
  3. AZITHROMYCIN ANHYDROUS. [Concomitant]
     Active Substance: AZITHROMYCIN ANHYDROUS
  4. ORKAMBI [Suspect]
     Active Substance: IVACAFTOR\LUMACAFTOR
     Indication: CYSTIC FIBROSIS
     Dosage: 2 DF, BID
     Route: 048
     Dates: start: 20160305, end: 20170313
  5. RANITIDINE. [Concomitant]
     Active Substance: RANITIDINE
  6. INSULIN [Concomitant]
     Active Substance: INSULIN NOS
  7. SALBUTAMOL [Concomitant]
     Active Substance: ALBUTEROL
  8. MORPHINE SULFATE. [Concomitant]
     Active Substance: MORPHINE SULFATE
  9. PULMOZYME [Concomitant]
     Active Substance: DORNASE ALFA
     Dosage: 2.5 MG, QD
     Route: 055
  10. ADCAL D3 [Concomitant]
     Active Substance: CALCIUM CARBONATE\CHOLECALCIFEROL
  11. VITAMIN K [Concomitant]
     Active Substance: PHYTONADIONE
  12. COLOMYCIN [Concomitant]
     Active Substance: COLISTIN
  13. VITAMIN E [Concomitant]
     Active Substance: .ALPHA.-TOCOPHEROL
  14. OMEPRAZOLE. [Concomitant]
     Active Substance: OMEPRAZOLE

REACTIONS (1)
  - Respiratory failure [Fatal]

NARRATIVE: CASE EVENT DATE: 20170307
